FAERS Safety Report 8951733 (Version 1)
Quarter: 2012Q4

REPORT INFORMATION
  Report Type: 
  Country: FR (occurrence: FR)
  Receive Date: 20121204
  Receipt Date: 20121204
  Transmission Date: 20130627
  Serious: Yes (Hospitalization, Other)
  Sender: FDA-Public Use
  Company Number: FR-MEDICIS-2012P1066253

PATIENT

DRUGS (1)
  1. SODIUM PHENYLBUTYRATE [Suspect]
     Route: 048

REACTIONS (2)
  - Hepatitis alcoholic [Unknown]
  - Liver transplant [Unknown]
